FAERS Safety Report 21365055 (Version 1)
Quarter: 2022Q3

REPORT INFORMATION
  Report Type: Spontaneous
  Country: SG (occurrence: SG)
  Receive Date: 20220922
  Receipt Date: 20220922
  Transmission Date: 20221027
  Serious: Yes (Hospitalization)
  Sender: FDA-Public Use
  Company Number: SG-MYLANLABS-2022M1095923

PATIENT
  Age: 37 Year
  Sex: Male

DRUGS (4)
  1. CLOZAPINE [Suspect]
     Active Substance: CLOZAPINE
     Indication: Schizophrenia
     Dosage: 200 MILLIGRAM, QD
     Route: 065
  2. CLOZAPINE [Suspect]
     Active Substance: CLOZAPINE
     Dosage: 250 MILLIGRAM, QD
     Route: 065
  3. CLOZAPINE [Suspect]
     Active Substance: CLOZAPINE
     Dosage: RESTARTED ON CLOZAPINE 250 MG/DAY
     Route: 065
  4. CLOZAPINE [Suspect]
     Active Substance: CLOZAPINE
     Dosage: TITRATED TO 200 MG/DAY
     Route: 065

REACTIONS (4)
  - Neuroleptic malignant syndrome [Recovering/Resolving]
  - Generalised tonic-clonic seizure [Recovered/Resolved]
  - Catatonia [Recovered/Resolved]
  - Amnesia [Recovering/Resolving]
